FAERS Safety Report 8065230-9 (Version None)
Quarter: 2012Q1

REPORT INFORMATION
  Report Type: 
  Country: None (occurrence: None)
  Receive Date: 20120124
  Receipt Date: 20120113
  Transmission Date: 20120608
  Serious: Yes (Hospitalization)
  Sender: FDA-Public Use
  Company Number: US-BAYER-2011-036922

PATIENT
  Age: 35 Year
  Sex: Female
  Weight: 68.027 kg

DRUGS (11)
  1. LEVOFLOXACIN [Concomitant]
     Dosage: UNK
     Dates: start: 20060210, end: 20060215
  2. NAPROXEN [Concomitant]
     Dosage: UNK
     Dates: start: 20070605
  3. VICODIN [Concomitant]
     Indication: ANALGESIC THERAPY
     Dosage: UNK
     Dates: start: 20040101, end: 20070101
  4. SINGULAIR [Concomitant]
     Indication: ASTHMA
     Dosage: UNK
     Dates: start: 20070205, end: 20070601
  5. RHINOCORT [Concomitant]
     Dosage: UNK
     Dates: start: 20070605
  6. FLAGYL [Concomitant]
     Indication: BACTERIAL INFECTION
     Dosage: UNK
     Dates: start: 20050101, end: 20060101
  7. ADVAIR DISKUS 100/50 [Concomitant]
     Indication: ASTHMA
     Dosage: UNK
     Dates: start: 20070205, end: 20080301
  8. YAZ [Suspect]
     Indication: DYSFUNCTIONAL UTERINE BLEEDING
     Dosage: UNK
     Dates: start: 20070524, end: 20070605
  9. ALBUTEROL [Concomitant]
     Indication: ASTHMA
     Dosage: UNK
     Dates: start: 20070301, end: 20071101
  10. FLOVENT [Concomitant]
     Dosage: UNK
     Dates: start: 20070605
  11. ALLERGY SHOTS [Concomitant]
     Indication: ASTHMA
     Dosage: UNK
     Dates: start: 20070101, end: 20080101

REACTIONS (11)
  - PAIN [None]
  - CONTUSION [None]
  - DEEP VEIN THROMBOSIS [None]
  - LIMB DISCOMFORT [None]
  - HYPOAESTHESIA [None]
  - EMOTIONAL DISTRESS [None]
  - FEAR [None]
  - GENERAL PHYSICAL HEALTH DETERIORATION [None]
  - PAIN IN EXTREMITY [None]
  - MUSCULAR WEAKNESS [None]
  - ANXIETY [None]
